FAERS Safety Report 17792967 (Version 1)
Quarter: 2020Q2

REPORT INFORMATION
  Report Type: Report from Study
  Country: AR (occurrence: AR)
  Receive Date: 20200515
  Receipt Date: 20200515
  Transmission Date: 20200714
  Serious: Yes (Hospitalization)
  Sender: FDA-Public Use
  Company Number: NVSC2020AR132553

PATIENT
  Age: 14 Year
  Sex: Female

DRUGS (2)
  1. OMNITROPE [Suspect]
     Active Substance: SOMATROPIN
     Indication: TURNER^S SYNDROME
     Dosage: 5 MG
     Route: 065
     Dates: start: 20190813, end: 202001
  2. OMNITROPE [Suspect]
     Active Substance: SOMATROPIN
     Dosage: 5 MG
     Route: 065
     Dates: start: 202002, end: 202003

REACTIONS (1)
  - Erysipelas [Recovering/Resolving]

NARRATIVE: CASE EVENT DATE: 202001
